FAERS Safety Report 21299476 (Version 1)
Quarter: 2022Q3

REPORT INFORMATION
  Report Type: Spontaneous
  Country: None (occurrence: GB)
  Receive Date: 20220906
  Receipt Date: 20220906
  Transmission Date: 20221027
  Serious: Yes (Hospitalization, Other)
  Sender: FDA-Public Use
  Company Number: GB-Breckenridge Pharmaceutical, Inc.-2132591

PATIENT
  Age: 55 Year
  Sex: Male

DRUGS (8)
  1. OMEPRAZOLE [Suspect]
     Active Substance: OMEPRAZOLE
     Indication: Duodenal ulcer
     Route: 048
  2. CARVEDILOL [Concomitant]
     Active Substance: CARVEDILOL
  3. RAMIPRIL [Concomitant]
     Active Substance: RAMIPRIL
  4. IVABRADINE [Concomitant]
     Active Substance: IVABRADINE
  5. QUETIAPINE FUMARATE [Concomitant]
     Active Substance: QUETIAPINE FUMARATE
  6. BOCOCIZUMAB [Concomitant]
     Active Substance: BOCOCIZUMAB
  7. ISOSORBIDE MONONITRATE [Concomitant]
     Active Substance: ISOSORBIDE MONONITRATE
  8. FUROSEMIDE [Concomitant]
     Active Substance: FUROSEMIDE

REACTIONS (13)
  - Contusion [Recovered/Resolved]
  - Angina pectoris [Unknown]
  - Pulmonary oedema [Unknown]
  - Ventricular dysfunction [Unknown]
  - Psoriasis [Unknown]
  - Fluid retention [Unknown]
  - Cardiac failure [Unknown]
  - Contusion [Recovered/Resolved]
  - Angina pectoris [Unknown]
  - Presyncope [Unknown]
  - Hypotension [Unknown]
  - Oedema peripheral [Not Recovered/Not Resolved]
  - Anaemia [Unknown]
